FAERS Safety Report 14701454 (Version 1)
Quarter: 2018Q1

REPORT INFORMATION
  Report Type: Spontaneous
  Country: DE (occurrence: DE)
  Receive Date: 20180330
  Receipt Date: 20180330
  Transmission Date: 20180509
  Serious: Yes (Other)
  Sender: FDA-Public Use
  Company Number: DE-TEVA-2018-DE-877689

PATIENT
  Sex: Male

DRUGS (2)
  1. EREMFAT [Suspect]
     Active Substance: RIFAMPIN
     Indication: CYSTITIS
     Route: 065
  2. VANCOMYCIN [Suspect]
     Active Substance: VANCOMYCIN
     Indication: CYSTITIS
     Route: 065

REACTIONS (1)
  - Drug ineffective [Unknown]
